FAERS Safety Report 9437253 (Version 1)
Quarter: 2013Q3

REPORT INFORMATION
  Report Type: Spontaneous
  Country: TR (occurrence: TR)
  Receive Date: 20130802
  Receipt Date: 20130802
  Transmission Date: 20140515
  Serious: Yes (Death, Hospitalization, Other)
  Sender: FDA-Public Use
  Company Number: PHHY2013TR081061

PATIENT
  Age: 82 Year
  Sex: Male

DRUGS (3)
  1. ZOLEDRONATE [Suspect]
     Indication: PROSTATE CANCER
     Dosage: 4 MG, EVERY 4 WEEKS
     Route: 042
  2. BICALUTAMIDE [Concomitant]
     Dosage: UNK UKN, UNK
  3. LUTEINIZING HORMONE-RELEASING HORMONE [Concomitant]
     Dosage: UNK UKN, UNK

REACTIONS (26)
  - Multi-organ failure [Fatal]
  - Hydronephrosis [Unknown]
  - Bone lesion [Unknown]
  - Fatigue [Unknown]
  - Blood urea increased [Unknown]
  - Blood creatinine increased [Unknown]
  - Bone pain [Unknown]
  - Terminal state [Unknown]
  - Malnutrition [Unknown]
  - Osteonecrosis of jaw [Unknown]
  - Trismus [Unknown]
  - Mastication disorder [Unknown]
  - Facial pain [Unknown]
  - Exposed bone in jaw [Unknown]
  - Mucosal inflammation [Unknown]
  - Tooth erosion [Unknown]
  - Oedema mucosal [Unknown]
  - Osteosclerosis [Unknown]
  - Oral pain [Unknown]
  - Oral infection [Unknown]
  - Tooth loss [Unknown]
  - Facial bones fracture [Unknown]
  - Hypophagia [Unknown]
  - Decreased appetite [Unknown]
  - Vomiting [Unknown]
  - Nausea [Unknown]
